FAERS Safety Report 7612620 (Version 3)
Quarter: 2013Q1

REPORT INFORMATION
  Report Type: Spontaneous
  Country: US (occurrence: US)
  Receive Date: 20100930
  Receipt Date: 20130104
  Transmission Date: 20140127
  Serious: Yes (Other)
  Sender: FDA-Public Use
  Company Number: US-JNJFOC-20100906272

PATIENT
  Age: 47 None
  Sex: Female
  Weight: 44 kg

DRUGS (11)
  1. REMICADE [Suspect]
     Indication: PSORIATIC ARTHROPATHY
     Route: 042
     Dates: start: 20100316, end: 20101103
  2. REMICADE [Suspect]
     Indication: PSORIATIC ARTHROPATHY
     Route: 042
     Dates: start: 20101103
  3. REMICADE [Suspect]
     Indication: PSORIATIC ARTHROPATHY
     Route: 042
     Dates: start: 2010
  4. REMICADE [Suspect]
     Indication: PSORIATIC ARTHROPATHY
     Route: 042
     Dates: start: 2010
  5. REMICADE [Suspect]
     Indication: PSORIASIS
     Route: 042
     Dates: start: 20100316, end: 20101103
  6. REMICADE [Suspect]
     Indication: PSORIASIS
     Route: 042
     Dates: start: 20101103
  7. REMICADE [Suspect]
     Indication: PSORIASIS
     Route: 042
     Dates: start: 2010
  8. REMICADE [Suspect]
     Indication: PSORIASIS
     Route: 042
     Dates: start: 2010
  9. ROXICET [Concomitant]
     Indication: HEADACHE
     Route: 048
     Dates: start: 2000
  10. EXCEDRIN MIGRAINE [Concomitant]
     Indication: HEADACHE
     Route: 048
     Dates: start: 2000
  11. PREDNISONE [Concomitant]
     Dosage: FREQUENCY: 3 TO 4 TIMES A YEAR
     Route: 065

REACTIONS (7)
  - Vision blurred [Recovered/Resolved]
  - Pain in extremity [Recovered/Resolved]
  - Back pain [Not Recovered/Not Resolved]
  - Cough [Unknown]
  - Pain in jaw [Not Recovered/Not Resolved]
  - Fatigue [Not Recovered/Not Resolved]
  - Dizziness [Not Recovered/Not Resolved]
